FAERS Safety Report 7387613-2 (Version None)
Quarter: 2011Q1

REPORT INFORMATION
  Report Type: 
  Country: None (occurrence: None)
  Receive Date: 20110331
  Receipt Date: 20110328
  Transmission Date: 20110831
  Serious: Yes (Hospitalization, Other)
  Sender: FDA-Public Use
  Company Number: KR-PFIZER INC-2011069494

PATIENT
  Age: 67 Year
  Sex: Male

DRUGS (4)
  1. CEFOTAXIME [Concomitant]
     Dosage: 6 G DAILY
     Route: 051
  2. CEFIXIME [Concomitant]
     Dosage: 200 MG DAILY
  3. METRONIDAZOLE [Suspect]
     Dosage: 500 MG, 3X/DAY
     Route: 048
  4. METRONIDAZOLE [Suspect]
     Dosage: 500 MG, 3X/DAY
     Route: 051

REACTIONS (5)
  - HYPERHIDROSIS [None]
  - NEUROTOXICITY [None]
  - DYSARTHRIA [None]
  - ATAXIA [None]
  - BLOOD PRESSURE FLUCTUATION [None]
